FAERS Safety Report 6520411-8 (Version None)
Quarter: 2009Q4

REPORT INFORMATION
  Report Type: 
  Country: None (occurrence: None)
  Receive Date: 20091229
  Receipt Date: 20091222
  Transmission Date: 20100525
  Serious: Yes (Death)
  Sender: FDA-Public Use
  Company Number: MA-ROCHE-676628

PATIENT
  Sex: Female
  Weight: 70 kg

DRUGS (3)
  1. BEVACIZUMAB [Suspect]
     Indication: DRUG USE FOR UNKNOWN INDICATION
     Route: 065
     Dates: end: 20090324
  2. NAVELBINE [Suspect]
     Dosage: D1 + D8
     Route: 042
     Dates: start: 20090421, end: 20090428
  3. FLUOROURACIL [Suspect]
     Dosage: 1 G/L; D2, D3, D4
     Route: 042
     Dates: start: 20090422, end: 20090424

REACTIONS (1)
  - BONE MARROW FAILURE [None]
